FAERS Safety Report 20322096 (Version 1)
Quarter: 2022Q1

REPORT INFORMATION
  Report Type: Spontaneous
  Country: CN (occurrence: CN)
  Receive Date: 20220111
  Receipt Date: 20220111
  Transmission Date: 20220424
  Serious: Yes (Hospitalization, Other)
  Sender: FDA-Public Use
  Company Number: CN-PFIZER INC-202101883180

PATIENT
  Age: 82 Year
  Sex: Male
  Weight: 68.7 kg

DRUGS (3)
  1. EPIRUBICIN [Suspect]
     Active Substance: EPIRUBICIN
     Indication: Lymphoma
     Dosage: 60 MG, 1X/DAY
     Route: 041
     Dates: start: 20210805, end: 20210805
  2. CYCLOPHOSPHAMIDE [Suspect]
     Active Substance: CYCLOPHOSPHAMIDE
     Indication: Lymphoma
     Dosage: 0.8 G, 1X/DAY
     Route: 041
     Dates: start: 20210805, end: 20210805
  3. SODIUM CHLORIDE [Concomitant]
     Active Substance: SODIUM CHLORIDE
     Indication: Vehicle solution use
     Dosage: 100 ML, 1X/DAY
     Route: 041
     Dates: start: 20210805, end: 20210805

REACTIONS (4)
  - Platelet count decreased [Recovering/Resolving]
  - White blood cell count increased [Recovering/Resolving]
  - Red blood cell count decreased [Recovering/Resolving]
  - Haemoglobin decreased [Recovering/Resolving]

NARRATIVE: CASE EVENT DATE: 20210812
